FAERS Safety Report 25540022 (Version 3)
Quarter: 2025Q4

REPORT INFORMATION
  Report Type: Spontaneous
  Country: US (occurrence: US)
  Receive Date: 20250710
  Receipt Date: 20251120
  Transmission Date: 20260118
  Serious: Yes (Hospitalization, Disabling, Other)
  Sender: FRESENIUS KABI
  Company Number: US-FreseniusKabi-FK202509331

PATIENT
  Age: 35 Year
  Sex: Male
  Weight: 81.65 kg

DRUGS (5)
  1. XYLOCAINE WITH EPINEPHRINE [Suspect]
     Active Substance: EPINEPHRINE BITARTRATE\LIDOCAINE HYDROCHLORIDE
     Indication: Pain management
     Dosage: INJECTION?FOA-LOCAL ADMIN INTO TISSUE SURROUNDING BIOPSIED AREA
     Dates: start: 202408, end: 202408
  2. XYLOCAINE WITH EPINEPHRINE [Suspect]
     Active Substance: EPINEPHRINE BITARTRATE\LIDOCAINE HYDROCHLORIDE
     Dosage: INJECTION?FOA-LOCAL ADMIN INTO TISSUE SURROUNDING BIOPSIED AREA
     Dates: start: 202412, end: 202412
  3. MEPIVACAINE [Suspect]
     Active Substance: MEPIVACAINE HYDROCHLORIDE
     Indication: Pain management
     Dates: start: 20240208
  4. BUPIVACAINE [Suspect]
     Active Substance: BUPIVACAINE
     Indication: Pain management
     Dosage: INJECTION?FOA-LOCAL ADMIN. INTO TISSUE FOR DENTAL FILLING
     Dates: start: 202402, end: 202402
  5. BUPIVACAINE [Suspect]
     Active Substance: BUPIVACAINE
     Dosage: INJECTION?FOA-LOCAL ADMIN INTO TISSUE SURROUNDING BIOPSIED AREAS
     Dates: start: 20240217, end: 20240217

REACTIONS (17)
  - Electric shock sensation [Not Recovered/Not Resolved]
  - Chest pain [Not Recovered/Not Resolved]
  - Aphasia [Not Recovered/Not Resolved]
  - Paraesthesia [Unknown]
  - Post-traumatic stress disorder [Unknown]
  - Anxiety [Not Recovered/Not Resolved]
  - Hyperaesthesia [Not Recovered/Not Resolved]
  - Condition aggravated [Not Recovered/Not Resolved]
  - Inflammation [Not Recovered/Not Resolved]
  - Abnormal loss of weight [Not Recovered/Not Resolved]
  - Memory impairment [Not Recovered/Not Resolved]
  - Malignant melanoma [Unknown]
  - Nerve injury [Unknown]
  - Mental disorder [Unknown]
  - Illness [Unknown]
  - Panic reaction [Unknown]
  - Abnormal behaviour [Unknown]

NARRATIVE: CASE EVENT DATE: 20250101
